FAERS Safety Report 8790782 (Version 1)
Quarter: 2012Q4

REPORT INFORMATION
  Report Type: Spontaneous
  Country: DE (occurrence: None)
  Receive Date: 20120907
  Receipt Date: 20120907
  Transmission Date: 20130627
  Serious: Yes (Death, Congenital Anomaly)
  Sender: FDA-Public Use
  Company Number: 2012ZX000310

PATIENT
  Sex: Male

DRUGS (1)
  1. SUMATRIPTAN [Suspect]
     Route: 064
     Dates: start: 20110609, end: 20111007

REACTIONS (6)
  - Maternal drugs affecting foetus [None]
  - Oligohydramnios [None]
  - Renal aplasia [None]
  - Potter^s syndrome [None]
  - Abortion induced [None]
  - Congenital bladder anomaly [None]
